FAERS Safety Report 18436994 (Version 4)
Quarter: 2022Q4

REPORT INFORMATION
  Report Type: Report from Study
  Country: US (occurrence: US)
  Receive Date: 20201028
  Receipt Date: 20221121
  Transmission Date: 20230113
  Serious: Yes (Death, Hospitalization)
  Sender: FDA-Public Use
  Company Number: US-PFIZER INC-2020401804

PATIENT
  Age: 60 Year
  Sex: Male
  Weight: 120.3 kg

DRUGS (22)
  1. INOTUZUMAB OZOGAMICIN [Suspect]
     Active Substance: INOTUZUMAB OZOGAMICIN
     Indication: B precursor type acute leukaemia
     Dosage: 0.8 MG/M2 IV ON DAY 1 AND 0.5 MG/M2 IV ON DAYS 8 AND 15, CYCLE
     Route: 042
     Dates: start: 20200826, end: 20200909
  2. METHOTREXATE SODIUM [Concomitant]
     Active Substance: METHOTREXATE SODIUM
     Indication: B precursor type acute leukaemia
     Dosage: 15 MG, CYCLIC
     Route: 037
     Dates: start: 20200821, end: 20200821
  3. ACYCLOVIR [Concomitant]
     Active Substance: ACYCLOVIR
  4. ALLOPURINOL [Concomitant]
     Active Substance: ALLOPURINOL
  5. ASCORBIC ACID [Concomitant]
     Active Substance: ASCORBIC ACID
  6. LORAZEPAM [Concomitant]
     Active Substance: LORAZEPAM
  7. MORPHINE SULFATE [Concomitant]
     Active Substance: MORPHINE SULFATE
  8. CYANOCOBALAMIN [Concomitant]
     Active Substance: CYANOCOBALAMIN
  9. DULOXETINE [Concomitant]
     Active Substance: DULOXETINE
  10. FLUCONAZOLE [Concomitant]
     Active Substance: FLUCONAZOLE
  11. INSULIN ASPART [Concomitant]
     Active Substance: INSULIN ASPART
  12. LAMOTRIGINE [Concomitant]
     Active Substance: LAMOTRIGINE
  13. INSULIN GLARGINE [Concomitant]
     Active Substance: INSULIN GLARGINE
  14. LEVOFLOXACIN [Concomitant]
     Active Substance: LEVOFLOXACIN
  15. METFORMIN [Concomitant]
     Active Substance: METFORMIN HYDROCHLORIDE
  16. POLYETHYLENE GLYCOLS [Concomitant]
     Active Substance: POLYETHYLENE GLYCOLS
  17. PANTOPRAZOLE [Concomitant]
     Active Substance: PANTOPRAZOLE
  18. PROMETHAZINE [Concomitant]
     Active Substance: PROMETHAZINE HYDROCHLORIDE
  19. PROPRANOLOL [Concomitant]
     Active Substance: PROPRANOLOL HYDROCHLORIDE
  20. QUETIAPINE [Concomitant]
     Active Substance: QUETIAPINE
  21. TAMSULOSIN [Concomitant]
     Active Substance: TAMSULOSIN
  22. URSODIOL [Concomitant]
     Active Substance: URSODIOL

REACTIONS (8)
  - Respiratory failure [Fatal]
  - Encephalopathy [Unknown]
  - Muscular weakness [Recovered/Resolved]
  - Pulmonary oedema [Unknown]
  - Confusional state [Unknown]
  - Venoocclusive liver disease [Unknown]
  - Blood bilirubin increased [Unknown]
  - Fatigue [Recovered/Resolved]

NARRATIVE: CASE EVENT DATE: 20200913
